FAERS Safety Report 19114262 (Version 1)
Quarter: 2021Q2

REPORT INFORMATION
  Report Type: Spontaneous
  Country: US (occurrence: US)
  Receive Date: 20210409
  Receipt Date: 20210409
  Transmission Date: 20210717
  Serious: No
  Sender: FDA-Public Use
  Company Number: US-STRONGBRIDGE BIOPHARMA-2021-STR-000117

PATIENT
  Age: 46 Year
  Sex: Female

DRUGS (1)
  1. KEVEYIS [Suspect]
     Active Substance: DICHLORPHENAMIDE
     Indication: LONG QT SYNDROME
     Dosage: 100 MG, BID
     Route: 048

REACTIONS (3)
  - Fatigue [Unknown]
  - Hypersomnia [Unknown]
  - Tenderness [Unknown]

NARRATIVE: CASE EVENT DATE: 20210331
